FAERS Safety Report 4420013-3 (Version None)
Quarter: 2004Q3

REPORT INFORMATION
  Report Type: 
  Country: None (occurrence: None)
  Receive Date: 20040804
  Receipt Date: 20040722
  Transmission Date: 20050211
  Serious: Yes (Hospitalization, Other)
  Sender: FDA-Public Use
  Company Number: 2003112467

PATIENT
  Age: 74 Year
  Sex: Male
  Weight: 68.4932 kg

DRUGS (15)
  1. LIPITOR [Suspect]
     Indication: BLOOD CHOLESTEROL INCREASED
     Dosage: 10 MG (DAILY), ORAL
     Route: 048
     Dates: start: 20010101, end: 20031001
  2. EZETIMIBE (EZETIMIBE) [Suspect]
     Indication: ILL-DEFINED DISORDER
  3. FUROSEMIDE [Concomitant]
  4. POTASSIUM (POTASSIUM) [Concomitant]
  5. MOMETASONE FUROATE [Concomitant]
  6. ROSIGLITAZONE MALEATE [Concomitant]
  7. GLIPIZIDE [Concomitant]
  8. INSULIN [Concomitant]
  9. VITAMINS (VITAMINS) [Concomitant]
  10. ASCORBIC ACID 9ASCORBIC ACID) [Concomitant]
  11. FEXOFENADINE HYDROCHLORIDE [Concomitant]
  12. PIOGLITAZONE HCL [Concomitant]
  13. RAMIPRIL [Concomitant]
  14. METFORMIN HCL [Concomitant]
  15. CLOPIDOGREL BISULFATE [Concomitant]

REACTIONS (9)
  - ANAEMIA [None]
  - CARDIAC OPERATION [None]
  - CATARACT [None]
  - MUSCLE INJURY [None]
  - MYALGIA [None]
  - NECK PAIN [None]
  - PAIN IN EXTREMITY [None]
  - PULMONARY OEDEMA [None]
  - WEIGHT DECREASED [None]
